FAERS Safety Report 8964578 (Version 2)
Quarter: 2013Q1

REPORT INFORMATION
  Report Type: Spontaneous
  Country: FR (occurrence: FR)
  Receive Date: 20121214
  Receipt Date: 20130208
  Transmission Date: 20140127
  Serious: Yes (Other)
  Sender: FDA-Public Use
  Company Number: FR-JNJFOC-20121203998

PATIENT
  Sex: Male
  Weight: 35.5 kg

DRUGS (5)
  1. RISPERDAL [Suspect]
     Indication: ANXIETY
     Route: 048
  2. RISPERDAL [Suspect]
     Indication: ANXIETY
     Route: 048
     Dates: start: 2011
  3. RISPERDAL [Suspect]
     Indication: AGGRESSION
     Route: 048
  4. RISPERDAL [Suspect]
     Indication: AGGRESSION
     Route: 048
     Dates: start: 2011
  5. CIRCADIN [Concomitant]
     Indication: INSOMNIA
     Route: 048

REACTIONS (5)
  - Dyskinesia oesophageal [Recovered/Resolved]
  - Weight increased [Recovering/Resolving]
  - Vomiting [Unknown]
  - Drooling [Unknown]
  - Drug ineffective [Unknown]
